FAERS Safety Report 20360730 (Version 4)
Quarter: 2022Q1

REPORT INFORMATION
  Report Type: Spontaneous
  Country: US (occurrence: US)
  Receive Date: 20220121
  Receipt Date: 20220314
  Transmission Date: 20220424
  Serious: No
  Sender: FDA-Public Use
  Company Number: US-SANOFI-00932804

PATIENT
  Age: 55 Year
  Sex: Male

DRUGS (1)
  1. SOLIQUA 100/33 [Suspect]
     Active Substance: INSULIN GLARGINE\LIXISENATIDE
     Indication: Type 2 diabetes mellitus
     Dosage: 31 IU, QD, DRUG STRUCTURE DOSAGE : 31 UNITS DRUG INTERVAL DOSAGE : ONCE IN THE MORNING

REACTIONS (2)
  - Blood glucose increased [Unknown]
  - Device issue [Unknown]
